FAERS Safety Report 4064150 (Version 2)
Quarter: 2017Q4

REPORT INFORMATION
  Report Type: Report from Study
  Country: JP (occurrence: JP)
  Receive Date: 20040115
  Receipt Date: 20171009
  Transmission Date: 20180321
  Serious: Yes (Death, Life-Threatening, Other)
  Sender: FDA-Public Use
  Company Number: JP-BRISTOL-MYERS SQUIBB COMPANY-12476222

PATIENT
  Age: 1 Year
  Sex: Male

DRUGS (3)
  1. MELPHALAN. [Concomitant]
     Active Substance: MELPHALAN
     Indication: AUTOLOGOUS BONE MARROW TRANSPLANTATION THERAPY
     Dosage: 90 MG/M2, QD
     Route: 042
     Dates: start: 20030117, end: 20030118
  2. CARBOPLATIN. [Suspect]
     Active Substance: CARBOPLATIN
     Indication: AUTOLOGOUS BONE MARROW TRANSPLANTATION THERAPY
     Dosage: 400 MG/M2, QD
     Route: 042
     Dates: start: 20030114, end: 20030117
  3. VEPESID [Suspect]
     Active Substance: ETOPOSIDE
     Indication: AUTOLOGOUS BONE MARROW TRANSPLANTATION THERAPY
     Dosage: 200 MG/M2, QD
     Route: 042
     Dates: start: 20030114, end: 20030117

REACTIONS (2)
  - Venoocclusive liver disease [Fatal]
  - Infection [Fatal]

NARRATIVE: CASE EVENT DATE: 200301
